FAERS Safety Report 19694785 (Version 2)
Quarter: 2021Q3

REPORT INFORMATION
  Report Type: Report from Study
  Country: US (occurrence: US)
  Receive Date: 20210812
  Receipt Date: 20210922
  Transmission Date: 20211014
  Serious: No
  Sender: FDA-Public Use
  Company Number: NVSC2021US181002

PATIENT
  Sex: Female

DRUGS (1)
  1. XIIDRA [Suspect]
     Active Substance: LIFITEGRAST
     Indication: DRY EYE
     Dosage: UNK, BID
     Route: 047
     Dates: start: 2021

REACTIONS (3)
  - Dysgeusia [Recovered/Resolved]
  - Vision blurred [Unknown]
  - Lacrimation increased [Unknown]
